FAERS Safety Report 9661458 (Version 2)
Quarter: 2013Q4

REPORT INFORMATION
  Report Type: Spontaneous
  Country: US (occurrence: US)
  Receive Date: 20131031
  Receipt Date: 20131031
  Transmission Date: 20140711
  Serious: No
  Sender: FDA-Public Use
  Company Number: US-PURDUE-USA-2010-0053708

PATIENT
  Sex: Male

DRUGS (3)
  1. OXYCONTIN (NDA 22-272) [Suspect]
     Indication: PAIN
     Dosage: 320 MG, AM
     Route: 048
     Dates: start: 201008
  2. OXYCONTIN (NDA 22-272) [Suspect]
     Dosage: 240 MG, AFTERNOON
     Route: 048
     Dates: start: 201008
  3. OXYCONTIN (NDA 22-272) [Suspect]
     Dosage: 320 MG, PM
     Dates: start: 201008

REACTIONS (4)
  - Medication residue present [Not Recovered/Not Resolved]
  - Abdominal distension [Not Recovered/Not Resolved]
  - Diarrhoea [Not Recovered/Not Resolved]
  - Drug effect decreased [Not Recovered/Not Resolved]
